FAERS Safety Report 6264245-0 (Version None)
Quarter: 2009Q3

REPORT INFORMATION
  Report Type: 
  Country: None (occurrence: None)
  Receive Date: 20090710
  Receipt Date: 20090707
  Transmission Date: 20100115
  Serious: Yes (Other)
  Sender: FDA-Public Use
  Company Number: US-ROXANE LABORATORIES, INC.-2009-RO-00661RO

PATIENT
  Age: 52 Year
  Sex: Male

DRUGS (6)
  1. METHADONE [Suspect]
     Indication: DRUG WITHDRAWAL MAINTENANCE THERAPY
     Dosage: 80 MG
  2. METHADONE [Suspect]
  3. COCAINE [Suspect]
  4. HEROIN [Suspect]
     Route: 042
  5. BUPRENORPHINE HCL [Suspect]
     Indication: DRUG WITHDRAWAL MAINTENANCE THERAPY
     Dosage: 24 MG
  6. VARDENAFILL [Concomitant]
     Indication: SEXUAL DYSFUNCTION

REACTIONS (3)
  - DRUG DEPENDENCE [None]
  - DRUG SCREEN POSITIVE [None]
  - SEXUAL DYSFUNCTION [None]
